FAERS Safety Report 8690975 (Version 2)
Quarter: 2013Q4

REPORT INFORMATION
  Report Type: Spontaneous
  Country: US (occurrence: US)
  Receive Date: 20120730
  Receipt Date: 20131101
  Transmission Date: 20140711
  Serious: No
  Sender: FDA-Public Use
  Company Number: US-009507513-1207USA007101

PATIENT
  Age: 53 Year
  Sex: Female

DRUGS (2)
  1. PEGINTRON [Suspect]
     Indication: HEPATITIS C
     Route: 058
  2. RIBAVIRIN (WARRICK) [Suspect]
     Dosage: UNK

REACTIONS (2)
  - Injection site reaction [Not Recovered/Not Resolved]
  - Arthralgia [Unknown]
